FAERS Safety Report 8068456 (Version 2)
Quarter: 2012Q4

REPORT INFORMATION
  Report Type: 
  Country: US (occurrence: US)
  Receive Date: 20110804
  Receipt Date: 20120921
  Transmission Date: 20130627
  Serious: Yes (Other)
  Sender: FDA-Public Use
  Company Number: US-US-EMD SERONO, INC.-7073673

PATIENT
  Age: 37 None
  Sex: Female

DRUGS (4)
  1. REBIF [Suspect]
     Indication: MULTIPLE SCLEROSIS
     Route: 058
     Dates: start: 20040516, end: 20090910
  2. ALEVE [Concomitant]
     Indication: PRODUCT USED FOR UNKNOWN INDICATION
  3. BUPROPION XL [Concomitant]
     Indication: PRODUCT USED FOR UNKNOWN INDICATION
  4. HYDROCHOLOROTHIZE [Concomitant]
     Indication: PRODUCT USED FOR UNKNOWN INDICATION

REACTIONS (3)
  - Suicidal ideation [Recovering/Resolving]
  - Depression [Recovering/Resolving]
  - Personality change [Recovering/Resolving]
